FAERS Safety Report 13252599 (Version 2)
Quarter: 2017Q1

REPORT INFORMATION
  Report Type: Spontaneous
  Country: US (occurrence: US)
  Receive Date: 20170220
  Receipt Date: 20170302
  Transmission Date: 20170428
  Serious: No
  Sender: FDA-Public Use
  Company Number: US-009507513-1702USA006225

PATIENT
  Age: 20 Year
  Sex: Female
  Weight: 92.06 kg

DRUGS (3)
  1. BIOTIN [Concomitant]
     Active Substance: BIOTIN
     Dosage: 1 GRAM
  2. VALACICLOVIR [Concomitant]
     Active Substance: VALACYCLOVIR HYDROCHLORIDE
  3. NEXPLANON [Suspect]
     Active Substance: ETONOGESTREL
     Indication: MENSTRUAL CYCLE MANAGEMENT
     Dosage: DOSE/FREQUENCY: 1 ROD UP TO 3 YEARS; THERAPY ROUTE: IMPLANT LEFT ARM
     Route: 059
     Dates: start: 20170209

REACTIONS (7)
  - Hypersensitivity [Unknown]
  - Implant site nodule [Unknown]
  - Product use issue [Unknown]
  - Implant site pruritus [Unknown]
  - Implant site vesicles [Unknown]
  - Implant site erythema [Unknown]
  - Implant site pustules [Unknown]

NARRATIVE: CASE EVENT DATE: 20170209
